FAERS Safety Report 10059087 (Version 4)
Quarter: 2014Q3

REPORT INFORMATION
  Report Type: Spontaneous
  Country: US (occurrence: US)
  Receive Date: 20140404
  Receipt Date: 20140728
  Transmission Date: 20150326
  Serious: Yes (Hospitalization)
  Sender: FDA-Public Use
  Company Number: US-GILEAD-2014-0098636

PATIENT
  Sex: Female

DRUGS (2)
  1. LETAIRIS [Suspect]
     Active Substance: AMBRISENTAN
     Indication: PULMONARY ARTERIAL HYPERTENSION
     Dosage: 10 MG, QD
     Route: 065
     Dates: start: 20101111
  2. ADCIRCA [Concomitant]
     Active Substance: TADALAFIL
     Route: 065

REACTIONS (4)
  - Nasal dryness [Unknown]
  - Epistaxis [Unknown]
  - Cardiac disorder [Unknown]
  - Syncope [Unknown]
